FAERS Safety Report 9234945 (Version 2)
Quarter: 2013Q4

REPORT INFORMATION
  Report Type: Spontaneous
  Country: GB (occurrence: GB)
  Receive Date: 20130416
  Receipt Date: 20131011
  Transmission Date: 20140711
  Serious: Yes (Hospitalization, Other)
  Sender: FDA-Public Use
  Company Number: GB-MYLANLABS-2013S1007633

PATIENT
  Age: 77 Year
  Sex: Male

DRUGS (5)
  1. TAMSULOSIN [Suspect]
     Indication: PROSTATOMEGALY
  2. CLENIL MODULITE [Interacting]
     Indication: ASTHMA
     Route: 055
     Dates: start: 20130219
  3. LEVOTHYROXINE [Interacting]
     Indication: HYPOTHYROIDISM
  4. VERAPAMIL [Interacting]
     Indication: ATRIAL FIBRILLATION
  5. WARFARIN [Interacting]
     Indication: ATRIAL FIBRILLATION
     Dosage: 8MG OR 9 MG DAILY

REACTIONS (5)
  - Drug interaction [Unknown]
  - Haemorrhage [Unknown]
  - International normalised ratio decreased [Unknown]
  - Cerebrovascular accident [Unknown]
  - Therapeutic response unexpected [Unknown]
